FAERS Safety Report 8900356 (Version 2)
Quarter: 2012Q4

REPORT INFORMATION
  Report Type: 
  Country: CA (occurrence: CA)
  Receive Date: 20121109
  Receipt Date: 20121227
  Transmission Date: 20130627
  Serious: Yes (Disabling)
  Sender: FDA-Public Use
  Company Number: CA-ELI_LILLY_AND_COMPANY-CA201210006058

PATIENT
  Age: 56 Year
  Sex: Female
  Weight: 49.1 kg

DRUGS (2)
  1. FORTEO [Suspect]
     Indication: OSTEOPOROSIS
     Dosage: UNK, unknown
     Route: 058
     Dates: start: 201203
  2. VITAMIN D [Concomitant]
     Dosage: 5000 u, qd
     Route: 065

REACTIONS (1)
  - Multiple sclerosis relapse [Recovering/Resolving]
